FAERS Safety Report 6043437-X (Version None)
Quarter: 2009Q1

REPORT INFORMATION
  Report Type: 
  Country: None (occurrence: None)
  Receive Date: 20090115
  Receipt Date: 20090115
  Transmission Date: 20090719
  Serious: Yes (Other)
  Sender: FDA-Public Use
  Company Number: 2009AP000031

PATIENT
  Sex: 0

DRUGS (1)
  1. FLUNISOLIDE [Suspect]

REACTIONS (2)
  - EPISTAXIS [None]
  - PRODUCT CONTAMINATION [None]
